FAERS Safety Report 5201840-1 (Version None)
Quarter: 2006Q4

REPORT INFORMATION
  Report Type: 
  Country: None (occurrence: None)
  Receive Date: 20061003
  Receipt Date: 20060608
  Transmission Date: 20070319
  Serious: No
  Sender: FDA-Public Use
  Company Number: 2006-0009732

PATIENT
  Sex: Male

DRUGS (2)
  1. TRUVADA [Suspect]
  2. EFAVIRENZ [Concomitant]

REACTIONS (2)
  - ADVERSE EVENT [None]
  - GASTROINTESTINAL DISORDER [None]
